FAERS Safety Report 6820512-0 (Version None)
Quarter: 2010Q3

REPORT INFORMATION
  Report Type: 
  Country: None (occurrence: None)
  Receive Date: 20100707
  Receipt Date: 20100630
  Transmission Date: 20110219
  Serious: Yes (Other)
  Sender: FDA-Public Use
  Company Number: JP-BRISTOL-MYERS SQUIBB COMPANY-15122393

PATIENT
  Age: 37 Year
  Sex: Female

DRUGS (4)
  1. ABILIFY [Suspect]
     Indication: SCHIZOPHRENIA
     Dosage: 6MAY10-10MAY:6ML 11MAY-13MAY:12ML 14MAY-17MAY:18ML 18MAY10-ONG:30ML STRENGTH:.1%
     Route: 048
     Dates: start: 20100506
  2. MEILAX [Concomitant]
     Dosage: TAB
     Dates: start: 20100506, end: 20100506
  3. MYSLEE [Concomitant]
     Dosage: TAB
     Dates: start: 20100506
  4. DORAL [Concomitant]
     Dosage: TAB
     Dates: start: 20100506

REACTIONS (2)
  - ABORTION INDUCED [None]
  - PREGNANCY [None]
